FAERS Safety Report 11696160 (Version 1)
Quarter: 2015Q4

REPORT INFORMATION
  Report Type: Spontaneous
  Country: CN (occurrence: CN)
  Receive Date: 20151104
  Receipt Date: 20151104
  Transmission Date: 20160304
  Serious: Yes (Hospitalization)
  Sender: FDA-Public Use
  Company Number: CN-UNICHEM LABORATORIES LIMITED-UCM201511-000862

PATIENT
  Age: 28 Year
  Sex: Female

DRUGS (1)
  1. AMLODIPINE [Suspect]
     Active Substance: AMLODIPINE BESYLATE

REACTIONS (18)
  - Dizziness [Recovering/Resolving]
  - Oedema peripheral [Recovering/Resolving]
  - Oliguria [Recovering/Resolving]
  - Metabolic acidosis [Recovering/Resolving]
  - Pulmonary oedema [Recovering/Resolving]
  - Overdose [Recovering/Resolving]
  - Respiratory distress [Recovering/Resolving]
  - Hypoxia [Recovering/Resolving]
  - Shock [Recovering/Resolving]
  - Loss of consciousness [Recovered/Resolved]
  - Pallor [Recovered/Resolved]
  - Abdominal pain [Unknown]
  - Palpitations [Recovering/Resolving]
  - Nausea [Unknown]
  - Cough [Recovering/Resolving]
  - Peripheral coldness [Recovered/Resolved]
  - Dyspnoea [Recovering/Resolving]
  - Vomiting [Unknown]
